FAERS Safety Report 25706509 (Version 1)
Quarter: 2025Q3

REPORT INFORMATION
  Report Type: Report from Study
  Country: JP (occurrence: JP)
  Receive Date: 20250820
  Receipt Date: 20250820
  Transmission Date: 20251021
  Serious: Yes (Death, Hospitalization)
  Sender: EISAI
  Company Number: JP-Eisai-EC-2025-191378

PATIENT
  Age: 72 Year
  Sex: Male
  Weight: 50.3 kg

DRUGS (1)
  1. LEQEMBI [Suspect]
     Active Substance: LECANEMAB-IRMB
     Indication: Cognitive disorder
     Dates: start: 20240319, end: 20250518

REACTIONS (2)
  - Colon cancer [Fatal]
  - Thrombophlebitis migrans [Not Recovered/Not Resolved]

NARRATIVE: CASE EVENT DATE: 20250518
